FAERS Safety Report 7159927-2 (Version None)
Quarter: 2010Q4

REPORT INFORMATION
  Report Type: 
  Country: None (occurrence: None)
  Receive Date: 20101214
  Receipt Date: 20101209
  Transmission Date: 20110411
  Serious: Yes (Hospitalization)
  Sender: FDA-Public Use
  Company Number: BR-ABBOTT-10P-020-0671370-00

PATIENT
  Sex: Female
  Weight: 75 kg

DRUGS (7)
  1. HUMIRA [Suspect]
     Indication: RHEUMATOID ARTHRITIS
     Route: 058
     Dates: start: 20100601
  2. SULFASALAZINE [Concomitant]
     Indication: ARTHROPATHY
     Route: 048
     Dates: end: 20100910
  3. SULFASALAZINE [Concomitant]
     Indication: DYSARTHRIA
  4. SULFASALAZINE [Concomitant]
     Route: 048
     Dates: start: 20100910
  5. SULFASALAZINE [Concomitant]
  6. CHONDROITIN SULFATE SODIUM [Concomitant]
     Indication: ARTHROPATHY
     Route: 048
     Dates: end: 20100601
  7. CHONDROITIN SULFATE SODIUM [Concomitant]
     Indication: DYSARTHRIA

REACTIONS (8)
  - ARTHRALGIA [None]
  - BACK PAIN [None]
  - JOINT EFFUSION [None]
  - JOINT SWELLING [None]
  - OEDEMA PERIPHERAL [None]
  - PAIN [None]
  - PAIN IN EXTREMITY [None]
  - THERAPEUTIC RESPONSE DELAYED [None]
